FAERS Safety Report 8832521 (Version 1)
Quarter: 2012Q4

REPORT INFORMATION
  Report Type: 
  Country: US (occurrence: US)
  Receive Date: 20121010
  Receipt Date: 20121010
  Transmission Date: 20130627
  Serious: No
  Sender: FDA-Public Use
  Company Number: US-009507513-1209USA006550

PATIENT
  Age: 60 Year
  Sex: Male
  Weight: 101.59 kg

DRUGS (9)
  1. VICTRELIS [Suspect]
     Dosage: 800 mg, tid
     Route: 048
  2. PEGASYS [Suspect]
     Dosage: 180 MCG/M
     Route: 058
  3. REBETOL [Suspect]
     Dosage: 200 mg, UNK
     Route: 048
  4. FLOVENT HFA [Concomitant]
     Dosage: 110 Microgram, UNK
  5. JANUVIA [Concomitant]
     Dosage: 25 mg, UNK
     Route: 048
  6. TYLENOL [Concomitant]
     Dosage: 325 mg, UNK
     Route: 048
  7. BENADRYL [Concomitant]
     Dosage: 25 mg, UNK
     Route: 048
  8. CORTISONE [Concomitant]
  9. PROCRIT [Concomitant]
     Route: 058

REACTIONS (5)
  - Retinal disorder [Unknown]
  - Vision blurred [Unknown]
  - Increased appetite [Unknown]
  - Blood glucose increased [Unknown]
  - Rash [Unknown]
